FAERS Safety Report 14735332 (Version 1)
Quarter: 2018Q2

REPORT INFORMATION
  Report Type: Spontaneous
  Country: JP (occurrence: JP)
  Receive Date: 20180409
  Receipt Date: 20180409
  Transmission Date: 20180711
  Serious: Yes (Other)
  Sender: FDA-Public Use
  Company Number: JP-MYLANLABS-2018M1021979

PATIENT
  Age: 70 Year
  Sex: Male

DRUGS (7)
  1. SALINE                             /00075401/ [Concomitant]
     Active Substance: SODIUM CHLORIDE
     Dosage: CISPLATIN 110MG DILUTED IN 500ML 0.9% SODIUM CHLORIDE FOR SIX HOURS
     Route: 041
  2. DEXAMETHASONE. [Concomitant]
     Active Substance: DEXAMETHASONE
     Indication: DIFFUSE LARGE B-CELL LYMPHOMA
     Dosage: 40MG DILUTED IN 100ML 0.9% SODIUM CHLORIDE; ADMINISTERED FOR 30 MINUTES
     Route: 041
  3. SALINE                             /00075401/ [Concomitant]
     Active Substance: SODIUM CHLORIDE
     Indication: VEHICLE SOLUTION USE
     Dosage: DEXAMETHASONE 40MG DILUTED 100ML 0.9% SODIUM CHLORIDE WAS ADMINISTERED FOR 30 MINUTES
     Route: 041
  4. GEMCITABINE [Suspect]
     Active Substance: GEMCITABINE\GEMCITABINE HYDROCHLORIDE
     Indication: DIFFUSE LARGE B-CELL LYMPHOMA
     Dosage: 1500MG DILUTED IN 250 ML 5% GLUCOSE FOR 2 HOURS; FOURTH COURSE
     Route: 041
  5. GLUCOSE [Concomitant]
     Active Substance: DEXTROSE
     Indication: VEHICLE SOLUTION USE
     Dosage: GEMCITABINE 1,500MG DILUTED IN 250ML 5% GLUCOSE FOR TWO HOURS
     Route: 041
  6. CISPLATIN. [Suspect]
     Active Substance: CISPLATIN
     Indication: DIFFUSE LARGE B-CELL LYMPHOMA
     Dosage: 110MG DILUTED IN 500ML 0.9% SODIUM CHLORIDE FOR 6 HOURS; FOURTH COURSE
     Route: 041
  7. PALONOSETRON. [Concomitant]
     Active Substance: PALONOSETRON HYDROCHLORIDE
     Indication: PRODUCT USED FOR UNKNOWN INDICATION
     Dosage: 30 MINUTES BEFORE THE START OF CHEMOTHERAPY
     Route: 041

REACTIONS (2)
  - Skin necrosis [Recovered/Resolved]
  - Extravasation [Recovered/Resolved]
